FAERS Safety Report 9443693 (Version 3)
Quarter: 2015Q4

REPORT INFORMATION
  Report Type: Report from Study
  Country: US (occurrence: US)
  Receive Date: 20130806
  Receipt Date: 20151012
  Transmission Date: 20160305
  Serious: Yes (Hospitalization)
  Sender: FDA-Public Use
  Company Number: US-ROCHE-1257797

PATIENT
  Sex: Male
  Weight: 46.3 kg

DRUGS (1)
  1. PULMOZYME [Suspect]
     Active Substance: DORNASE ALFA
     Indication: CYSTIC FIBROSIS
     Dosage: NEBULIZER SIDESTREAM, PARI LC JET
     Route: 065

REACTIONS (2)
  - Pyrexia [Unknown]
  - Cystic fibrosis [Unknown]
